FAERS Safety Report 19290806 (Version 5)
Quarter: 2022Q4

REPORT INFORMATION
  Report Type: Report from Study
  Country: CA (occurrence: CA)
  Receive Date: 20210522
  Receipt Date: 20221031
  Transmission Date: 20230113
  Serious: Yes (Other)
  Sender: FDA-Public Use
  Company Number: NVSC2020CA321877

PATIENT
  Age: 36 Year
  Sex: Male

DRUGS (8)
  1. ILARIS [Suspect]
     Active Substance: CANAKINUMAB
     Indication: Tumour necrosis factor receptor-associated periodic syndrome
     Dosage: 150 MG, EVERY 4 WEEKS
     Route: 058
     Dates: start: 20201127
  2. PREDNISONE [Concomitant]
     Active Substance: PREDNISONE
     Indication: Product used for unknown indication
     Dosage: UNK
     Route: 065
     Dates: start: 2013, end: 2020
  3. IBUPROFEN [Concomitant]
     Active Substance: IBUPROFEN
     Indication: Product used for unknown indication
     Dosage: UNK, QD
     Route: 065
     Dates: start: 2013, end: 2020
  4. LANSOPRAZOLE [Concomitant]
     Active Substance: LANSOPRAZOLE
     Indication: Product used for unknown indication
     Dosage: UNK UNK, QD
     Route: 048
  5. DULOXETINE [Concomitant]
     Active Substance: DULOXETINE
     Indication: Product used for unknown indication
     Dosage: UNK, QD
     Route: 048
  6. COLCHICINE [Concomitant]
     Active Substance: COLCHICINE
     Indication: Product used for unknown indication
     Dosage: UNK UNK, QD
     Route: 048
     Dates: start: 202004, end: 202103
  7. PERINDOPRIL [Concomitant]
     Active Substance: PERINDOPRIL
     Indication: Product used for unknown indication
     Dosage: UNK UNK, QD
     Route: 065
     Dates: start: 20210511
  8. AMLODIPINE [Concomitant]
     Active Substance: AMLODIPINE BESYLATE
     Indication: Product used for unknown indication
     Dosage: UNK, QD
     Route: 048
     Dates: start: 20210216

REACTIONS (17)
  - Blood pressure systolic increased [Unknown]
  - Pruritus [Unknown]
  - Pain [Recovering/Resolving]
  - Myalgia [Recovering/Resolving]
  - Dizziness [Recovered/Resolved]
  - Fatigue [Unknown]
  - Rash erythematous [Unknown]
  - Hypersomnia [Unknown]
  - Rash [Unknown]
  - Hyperhidrosis [Unknown]
  - Arthralgia [Not Recovered/Not Resolved]
  - Ocular discomfort [Unknown]
  - General physical health deterioration [Unknown]
  - Tumour necrosis factor receptor-associated periodic syndrome [Unknown]
  - Condition aggravated [Not Recovered/Not Resolved]
  - Fungal infection [Unknown]
  - Needle issue [Unknown]

NARRATIVE: CASE EVENT DATE: 20201101
